FAERS Safety Report 12145857 (Version 1)
Quarter: 2016Q1

REPORT INFORMATION
  Report Type: Spontaneous
  Country: US (occurrence: US)
  Receive Date: 20160304
  Receipt Date: 20160304
  Transmission Date: 20160526
  Serious: Yes (Other)
  Sender: FDA-Public Use
  Company Number: US-SA-2016SA040888

PATIENT
  Sex: Female

DRUGS (2)
  1. LIPITOR [Concomitant]
     Active Substance: ATORVASTATIN CALCIUM
  2. MULTAQ [Suspect]
     Active Substance: DRONEDARONE
     Indication: ATRIAL FIBRILLATION
     Route: 065
     Dates: start: 201602

REACTIONS (6)
  - Pharyngeal oedema [Unknown]
  - Chest pain [Unknown]
  - Dyspnoea [Unknown]
  - Burning sensation [Unknown]
  - Oropharyngeal pain [Unknown]
  - Choking [Unknown]
